FAERS Safety Report 22224053 (Version 2)
Quarter: 2023Q2

REPORT INFORMATION
  Report Type: Spontaneous
  Country: US (occurrence: US)
  Receive Date: 20230418
  Receipt Date: 20230427
  Transmission Date: 20230721
  Serious: Yes (Other)
  Sender: FDA-Public Use
  Company Number: US-JNJFOC-20230415601

PATIENT
  Age: 59 Year
  Sex: Female
  Weight: 88.530 kg

DRUGS (2)
  1. TREMFYA [Suspect]
     Active Substance: GUSELKUMAB
     Indication: Psoriasis
     Route: 058
  2. TREMFYA [Suspect]
     Active Substance: GUSELKUMAB
     Indication: Psoriatic arthropathy

REACTIONS (4)
  - Psoriatic arthropathy [Unknown]
  - Accidental exposure to product [Unknown]
  - Device issue [Unknown]
  - Product dose omission issue [Unknown]

NARRATIVE: CASE EVENT DATE: 20230407
